FAERS Safety Report 5913261-4 (Version None)
Quarter: 2008Q4

REPORT INFORMATION
  Report Type: 
  Country: None (occurrence: None)
  Receive Date: 20081008
  Receipt Date: 20081008
  Transmission Date: 20090506
  Serious: Yes (Life-Threatening)
  Sender: FDA-Public Use
  Company Number: None

PATIENT
  Age: 87 Year
  Sex: Female

DRUGS (1)
  1. LISINOPRIL [Suspect]
     Indication: CARDIOMYOPATHY
     Dosage: 10MG DAILY PO
     Route: 048

REACTIONS (1)
  - ANGIOEDEMA [None]
